FAERS Safety Report 6382269-X (Version None)
Quarter: 2009Q3

REPORT INFORMATION
  Report Type: 
  Country: None (occurrence: None)
  Receive Date: 20090925
  Receipt Date: 20090915
  Transmission Date: 20100115
  Serious: No
  Sender: FDA-Public Use
  Company Number: 373647

PATIENT
  Age: 60 Year
  Sex: Female
  Weight: 81.6475 kg

DRUGS (1)
  1. MARCAINE           (BUPIVACAINE HCL W/EPINE) [Suspect]
     Indication: DRUG USE FOR UNKNOWN INDICATION
     Dosage: INJECTION
     Dates: start: 20090728, end: 20090101

REACTIONS (3)
  - INFECTION [None]
  - POSTOPERATIVE WOUND INFECTION [None]
  - WOUND INFECTION STAPHYLOCOCCAL [None]
